FAERS Safety Report 24413608 (Version 1)
Quarter: 2024Q4

REPORT INFORMATION
  Report Type: Spontaneous
  Country: US (occurrence: US)
  Receive Date: 20241008
  Receipt Date: 20241008
  Transmission Date: 20250115
  Serious: No
  Sender: SANDOZ
  Company Number: US-SANDOZ-SDZ2024US084551

PATIENT

DRUGS (2)
  1. HYRIMOZ [Suspect]
     Active Substance: ADALIMUMAB-ADAZ
     Indication: Product used for unknown indication
     Dosage: 40 MG N/A DOSE EVERY N/A N/A
     Route: 058
     Dates: start: 20241001
  2. HYRIMOZ [Suspect]
     Active Substance: ADALIMUMAB-ADAZ
     Indication: Product used for unknown indication
     Dosage: 40 MG N/A DOSE EVERY N/A N/A
     Route: 058
     Dates: start: 20241001

REACTIONS (2)
  - Product dose omission issue [Unknown]
  - Device malfunction [Unknown]
